FAERS Safety Report 9476254 (Version 1)
Quarter: 2013Q3

REPORT INFORMATION
  Report Type: Spontaneous
  Country: US (occurrence: None)
  Receive Date: 20130823
  Receipt Date: 20130823
  Transmission Date: 20140515
  Serious: No
  Sender: FDA-Public Use
  Company Number: None

PATIENT
  Age: 77 Year
  Sex: Male
  Weight: 83.9 kg

DRUGS (1)
  1. TERAZOSIN [Suspect]
     Indication: PROSTATIC DISORDER
     Dosage: 2 MG AT BEDTIME PO
     Route: 048
     Dates: start: 20130808, end: 20130812

REACTIONS (1)
  - Hypotension [None]
